FAERS Safety Report 17988860 (Version 1)
Quarter: 2020Q3

REPORT INFORMATION
  Report Type: Spontaneous
  Country: US (occurrence: US)
  Receive Date: 20200707
  Receipt Date: 20200707
  Transmission Date: 20201103
  Serious: No
  Sender: FDA-Public Use
  Company Number: None

PATIENT
  Age: 73 Year
  Sex: Female
  Weight: 76 kg

DRUGS (12)
  1. CISATRACURIUM. [Concomitant]
     Active Substance: CISATRACURIUM
     Dates: start: 20200627, end: 20200629
  2. ASPIRIN. [Concomitant]
     Active Substance: ASPIRIN
     Dates: start: 20200627
  3. FENTANYL. [Concomitant]
     Active Substance: FENTANYL
     Dates: start: 20200627
  4. LASIX [Concomitant]
     Active Substance: FUROSEMIDE
     Dates: start: 20200627
  5. HEPARIN [Concomitant]
     Active Substance: HEPARIN SODIUM
     Dates: start: 20200627, end: 20200704
  6. DIPRIVAN [Concomitant]
     Active Substance: PROPOFOL
     Dates: start: 20200627
  7. REMDESIVIR. [Suspect]
     Active Substance: REMDESIVIR
     Indication: COVID-19
     Route: 042
  8. CEFTRIAXONE. [Concomitant]
     Active Substance: CEFTRIAXONE
     Dates: start: 20200627, end: 20200630
  9. DECADRON [Concomitant]
     Active Substance: DEXAMETHASONE
     Dates: start: 20200627
  10. DIGOXIN. [Concomitant]
     Active Substance: DIGOXIN
  11. NOREPINEPHRINE. [Concomitant]
     Active Substance: NOREPINEPHRINE
     Dates: start: 20200627, end: 20200704
  12. AZITHROMYCIN ANHYDROUS. [Concomitant]
     Active Substance: AZITHROMYCIN ANHYDROUS
     Dates: start: 20200627, end: 20200630

REACTIONS (2)
  - Aspartate aminotransferase increased [None]
  - Alanine aminotransferase increased [None]

NARRATIVE: CASE EVENT DATE: 20200701
